FAERS Safety Report 7759268-6 (Version None)
Quarter: 2011Q3

REPORT INFORMATION
  Report Type: 
  Country: None (occurrence: None)
  Receive Date: 20110919
  Receipt Date: 20110913
  Transmission Date: 20111222
  Serious: Yes (Death)
  Sender: FDA-Public Use
  Company Number: FR-PFIZER INC-2011216956

PATIENT
  Age: 42 Year

DRUGS (7)
  1. FLUOROURACIL [Suspect]
     Indication: NASOPHARYNGEAL CANCER
     Dosage: 800 MG/M2/DAY, DAYS 1-4, EVERY 4 WEEKS
     Route: 042
  2. METOCLOPRAMIDE [Concomitant]
     Indication: ANTIEMETIC SUPPORTIVE CARE
     Dosage: UNK
  3. EPIRUBICIN HYDROCHLORIDE [Suspect]
     Indication: NASOPHARYNGEAL CANCER
     Dosage: 70 MG/M2, DAY 1, EVERY 4 WEEKS
  4. SODIUM CHLORIDE [Concomitant]
     Indication: PROPHYLAXIS AGAINST DEHYDRATION
     Dosage: 0.9%, 6L/24 HOURS
  5. MANNITOL [Concomitant]
     Dosage: UNK
  6. MITOMYCIN [Suspect]
     Indication: NASOPHARYNGEAL CANCER
     Dosage: 10 MG/M2, DAY 1, EVERY 4 WEEKS (CYCLES 1,3 AND 5)
  7. CISPLATIN [Suspect]
     Indication: NASOPHARYNGEAL CANCER
     Dosage: 100 MG/M2, DAY 1, EVERY 4 WEEKS

REACTIONS (1)
  - CARDIAC FAILURE [None]
